FAERS Safety Report 4424757-9 (Version None)
Quarter: 2004Q3

REPORT INFORMATION
  Report Type: 
  Country: None (occurrence: None)
  Receive Date: 20040805
  Receipt Date: 20040308
  Transmission Date: 20050211
  Serious: Yes (Hospitalization)
  Sender: FDA-Public Use
  Company Number: TCI2004A02966

PATIENT
  Age: 49 Year
  Sex: Female

DRUGS (6)
  1. TAKEPRON OD TABLETS 30 (LANSOPRAZOLE) (TABLETS) [Suspect]
     Indication: REFLUX OESOPHAGITIS
     Dosage: SEE IMAGE
     Route: 048
     Dates: start: 20040417, end: 20040603
  2. TAKEPRON OD TABLETS 30 (LANSOPRAZOLE) (TABLETS) [Suspect]
     Indication: REFLUX OESOPHAGITIS
     Dosage: SEE IMAGE
     Route: 048
     Dates: start: 20040417
  3. TAKEPRON OD TABLETS 30 (LANSOPRAZOLE) (TABLETS) [Suspect]
     Indication: REFLUX OESOPHAGITIS
     Dosage: SEE IMAGE
     Route: 048
     Dates: start: 20040609
  4. NORVASC [Suspect]
     Indication: HYPERTENSION
     Dosage: 5 MG (5MG, 1 IN 1 D), PER ORAL
     Route: 048
     Dates: start: 20020112, end: 20040603
  5. COVERSYL (PERINDROPIL) (TABLETS) [Suspect]
     Indication: HYPERTENSION
     Dosage: 8 MG (4 MG, 2 IN 1D), PER ORAL
     Route: 048
     Dates: start: 20020126, end: 20040603
  6. MAGNESIUM OXIDE (MAGNESIUM OXIDE) [Concomitant]

REACTIONS (4)
  - COLITIS EROSIVE [None]
  - CONSTIPATION [None]
  - INTESTINAL ISCHAEMIA [None]
  - ULCER [None]
